FAERS Safety Report 7389198-3 (Version None)
Quarter: 2011Q2

REPORT INFORMATION
  Report Type: 
  Country: None (occurrence: None)
  Receive Date: 20110401
  Receipt Date: 20110328
  Transmission Date: 20111010
  Serious: Yes (Other)
  Sender: FDA-Public Use
  Company Number: US-PFIZER INC-2010037721

PATIENT
  Sex: Male

DRUGS (3)
  1. ZOLOFT [Suspect]
     Indication: ANXIETY
     Dosage: UNK
     Dates: start: 20071102, end: 20091218
  2. ZOLOFT [Suspect]
     Indication: DEPRESSION
  3. EFFEXOR XR [Suspect]
     Dosage: UNK
     Route: 048
     Dates: start: 20070101, end: 20090101

REACTIONS (9)
  - DRUG DEPENDENCE [None]
  - ANXIETY [None]
  - LIBIDO DECREASED [None]
  - DISSOCIATION [None]
  - SENSORY DISTURBANCE [None]
  - IMPULSE-CONTROL DISORDER [None]
  - FEAR [None]
  - SOMNOLENCE [None]
  - TENSION [None]
